FAERS Safety Report 7378778-7 (Version None)
Quarter: 2011Q1

REPORT INFORMATION
  Report Type: 
  Country: None (occurrence: None)
  Receive Date: 20110328
  Receipt Date: 20110323
  Transmission Date: 20110831
  Serious: Yes (Other)
  Sender: FDA-Public Use
  Company Number: US-BRISTOL-MYERS SQUIBB COMPANY-15630635

PATIENT
  Sex: Male

DRUGS (6)
  1. ATENOLOL [Suspect]
     Dosage: HALF OF THE 25MG DOSE
  2. VERAPAMIL [Suspect]
  3. COGENTIN [Concomitant]
  4. SINGULAIR [Concomitant]
  5. ABILIFY [Suspect]
     Indication: SCHIZOPHRENIA, PARANOID TYPE
     Dosage: EXPIRED DATE:2006 TO 2008
  6. SPIRIVA [Concomitant]

REACTIONS (8)
  - BLOOD PRESSURE DECREASED [None]
  - DYSPNOEA [None]
  - TREMOR [None]
  - CATARACT [None]
  - ASTHMA [None]
  - PALLOR [None]
  - HYPERHIDROSIS [None]
  - CIRCUMSTANCE OR INFORMATION CAPABLE OF LEADING TO MEDICATION ERROR [None]
